FAERS Safety Report 24037355 (Version 2)
Quarter: 2024Q3

REPORT INFORMATION
  Report Type: Report from Study
  Country: BR (occurrence: BR)
  Receive Date: 20240702
  Receipt Date: 20240709
  Transmission Date: 20241017
  Serious: Yes (Other)
  Sender: ABBVIE
  Company Number: BR-ABBVIE-5819465

PATIENT
  Sex: Female

DRUGS (7)
  1. BOTOX [Suspect]
     Active Substance: ONABOTULINUMTOXINA
     Indication: Migraine
     Dosage: TIME INTERVAL: AS NECESSARY: FORM STRENGTH: 200 IU
     Route: 065
     Dates: start: 2017, end: 2017
  2. BOTOX [Suspect]
     Active Substance: ONABOTULINUMTOXINA
     Indication: Migraine
     Dosage: TIME INTERVAL: AS NECESSARY: FORM STRENGTH: 200 IU
     Route: 065
     Dates: start: 2019, end: 2019
  3. BOTOX [Suspect]
     Active Substance: ONABOTULINUMTOXINA
     Indication: Migraine
     Dosage: TIME INTERVAL: AS NECESSARY: FORM STRENGTH: 200 IU
     Route: 065
     Dates: start: 2023, end: 2023
  4. ATENOLOL [Concomitant]
     Active Substance: ATENOLOL
     Indication: Migraine
     Dosage: FORM STRENGTH: 25 MILLIGRAM
     Route: 048
     Dates: start: 2010
  5. TOPIRAMATE [Concomitant]
     Active Substance: TOPIRAMATE
     Indication: Product used for unknown indication
     Dosage: FORM STRENGTH: 25 MILLIGRAM
     Dates: start: 20240619
  6. IMIPRAMINE [Concomitant]
     Active Substance: IMIPRAMINE
     Indication: Product used for unknown indication
     Dosage: FORM STRENGTH: 50 MILLIGRAM?2 TABLETS IN THE MORNING
  7. ELETRIPTAN [Concomitant]
     Active Substance: ELETRIPTAN
     Indication: Product used for unknown indication
     Dosage: FORM STRENGTH 80 MILLIGRAM?FREQUENCY TEXT: 1 TABLET WHEN CRISIS

REACTIONS (10)
  - Shoulder operation [Unknown]
  - Off label use [Unknown]
  - Migraine [Recovering/Resolving]
  - Pain [Not Recovered/Not Resolved]
  - Off label use [Unknown]
  - Bruxism [Unknown]
  - Tongue biting [Unknown]
  - Pain [Recovered/Resolved]
  - Product prescribing error [Unknown]
  - Oropharyngeal pain [Unknown]

NARRATIVE: CASE EVENT DATE: 20230101
